FAERS Safety Report 7641489-4 (Version None)
Quarter: 2011Q3

REPORT INFORMATION
  Report Type: 
  Country: None (occurrence: None)
  Receive Date: 20110728
  Receipt Date: 20110720
  Transmission Date: 20111222
  Serious: Yes (Hospitalization)
  Sender: FDA-Public Use
  Company Number: FI-MPIJNJ-2011-03108

PATIENT

DRUGS (6)
  1. VELCADE [Suspect]
     Indication: MULTIPLE MYELOMA
     Dosage: 2.5 MG, UNK
     Route: 042
     Dates: start: 20110624, end: 20110704
  2. POTASSIUM CHLORIDE [Concomitant]
     Dosage: 1 G, UNK
     Route: 048
  3. POLYETHYLENE GLYCOL [Concomitant]
     Route: 048
  4. OXYCODONE HCL [Concomitant]
     Dosage: 50 MG, UNK
     Route: 048
  5. DEXAMETHASONE [Suspect]
     Indication: MULTIPLE MYELOMA
     Dosage: 40 MG, UNK
     Route: 048
     Dates: start: 20110623, end: 20110705
  6. OMEPRAZOLE [Concomitant]
     Dosage: 20 MG, UNK
     Route: 048

REACTIONS (1)
  - INFECTION [None]
